FAERS Safety Report 16465420 (Version 1)
Quarter: 2019Q2

REPORT INFORMATION
  Report Type: Spontaneous
  Country: US (occurrence: US)
  Receive Date: 20190621
  Receipt Date: 20190621
  Transmission Date: 20190711
  Serious: Yes (Hospitalization)
  Sender: FDA-Public Use
  Company Number: US-ELI_LILLY_AND_COMPANY-US201906005971

PATIENT
  Sex: Female

DRUGS (4)
  1. HUMALOG [Suspect]
     Active Substance: INSULIN LISPRO
     Dosage: 10 U, PRN
     Route: 065
     Dates: end: 2018
  2. HUMALOG [Suspect]
     Active Substance: INSULIN LISPRO
     Dosage: 10 U, PRN
     Route: 065
     Dates: start: 2015
  3. HUMALOG [Suspect]
     Active Substance: INSULIN LISPRO
     Indication: BLOOD GLUCOSE INCREASED
     Dosage: 4 U, TID
     Route: 065
     Dates: start: 2015
  4. HUMALOG [Suspect]
     Active Substance: INSULIN LISPRO
     Dosage: 4 U, TID
     Route: 065
     Dates: end: 2018

REACTIONS (9)
  - Ovarian cancer stage III [Recovering/Resolving]
  - Pelvic pain [Unknown]
  - Thrombosis [Recovering/Resolving]
  - Dyspnoea [Unknown]
  - Gait disturbance [Unknown]
  - Asthenia [Unknown]
  - Weight increased [Unknown]
  - Pain in extremity [Unknown]
  - Hypersensitivity [Unknown]

NARRATIVE: CASE EVENT DATE: 2017
